FAERS Safety Report 20046653 (Version 1)
Quarter: 2021Q4

REPORT INFORMATION
  Report Type: Spontaneous
  Country: CN (occurrence: None)
  Receive Date: 20211109
  Receipt Date: 20211109
  Transmission Date: 20220303
  Serious: Yes (Disabling)
  Sender: FDA-Public Use
  Company Number: CN-ROCHE-2946654

PATIENT
  Age: 48 Year
  Sex: Female
  Weight: 36 kg

DRUGS (5)
  1. HERCEPTIN [Suspect]
     Active Substance: TRASTUZUMAB
     Indication: Breast cancer
     Route: 041
     Dates: start: 20210930, end: 20210930
  2. PERJETA [Suspect]
     Active Substance: PERTUZUMAB
     Indication: Breast cancer
     Dosage: 840MG (DOUBLED FOR THE FIRST TIME)
     Route: 041
     Dates: start: 20210930
  3. EPIRUBICIN [Concomitant]
     Active Substance: EPIRUBICIN
     Indication: Breast cancer
     Dates: start: 20210926
  4. CYCLOPHOSPHAMIDE [Concomitant]
     Active Substance: CYCLOPHOSPHAMIDE
     Indication: Breast cancer
     Dates: start: 20210926
  5. PACLITAXEL [Concomitant]
     Active Substance: PACLITAXEL
     Indication: Breast cancer
     Dates: start: 20210928

REACTIONS (4)
  - Pyrexia [Recovering/Resolving]
  - Myelosuppression [Recovering/Resolving]
  - White blood cell count decreased [Recovering/Resolving]
  - Red blood cell count decreased [Recovering/Resolving]

NARRATIVE: CASE EVENT DATE: 20210930
